FAERS Safety Report 4702877-9 (Version None)
Quarter: 2005Q2

REPORT INFORMATION
  Report Type: 
  Country: None (occurrence: None)
  Receive Date: 20050629
  Receipt Date: 20050620
  Transmission Date: 20051028
  Serious: Yes (Other)
  Sender: FDA-Public Use
  Company Number: PHEH2005US07161

PATIENT
  Age: 15 Year
  Sex: Female

DRUGS (1)
  1. FORADIL [Suspect]
     Indication: ASTHMA EXERCISE INDUCED

REACTIONS (1)
  - BLINDNESS TRANSIENT [None]
